FAERS Safety Report 13409342 (Version 1)
Quarter: 2017Q2

REPORT INFORMATION
  Report Type: Spontaneous
  Country: US (occurrence: US)
  Receive Date: 20170406
  Receipt Date: 20170406
  Transmission Date: 20170830
  Serious: No
  Sender: FDA-Public Use
  Company Number: None

PATIENT
  Age: 48 Year
  Sex: Male

DRUGS (1)
  1. ORENCIA [Suspect]
     Active Substance: ABATACEPT

REACTIONS (5)
  - Injection site erythema [None]
  - Pain [None]
  - Injection site pruritus [None]
  - Injection site irritation [None]
  - Depression [None]

NARRATIVE: CASE EVENT DATE: 20170406
